FAERS Safety Report 14830136 (Version 1)
Quarter: 2018Q2

REPORT INFORMATION
  Report Type: Spontaneous
  Country: US (occurrence: US)
  Receive Date: 20180430
  Receipt Date: 20180430
  Transmission Date: 20180711
  Serious: No
  Sender: FDA-Public Use
  Company Number: US-BRACCO DIAGNOSTICS, INC.-2018US01108

PATIENT
  Age: 1 Year
  Sex: Male

DRUGS (1)
  1. LIQUID E-Z-PAQUE [Suspect]
     Active Substance: BARIUM SULFATE
     Indication: X-RAY
     Dosage: 20 ML, SINGLE
     Route: 048
     Dates: start: 20180212, end: 20180212

REACTIONS (2)
  - Rash erythematous [Recovered/Resolved]
  - Accidental exposure to product [Recovered/Resolved]

NARRATIVE: CASE EVENT DATE: 20180212
